FAERS Safety Report 8421115-7 (Version None)
Quarter: 2012Q2

REPORT INFORMATION
  Report Type: 
  Country: None (occurrence: None)
  Receive Date: 20120323
  Receipt Date: 20111208
  Transmission Date: 20120825
  Serious: Yes (Hospitalization)
  Sender: FDA-Public Use
  Company Number: 163-21880-11121248

PATIENT
  Age: 66 Year
  Sex: Female

DRUGS (8)
  1. CENTRUM (CENTRUM) [Concomitant]
  2. ZOMETA [Concomitant]
  3. CALCIUM +D (OS-CAL) [Concomitant]
  4. OMEPRAZOLE [Concomitant]
  5. REVLIMID [Suspect]
     Indication: MULTIPLE MYELOMA
     Dosage: 25 MG, 1 IN 1 D, PO ; 5-10MG, DAILY, PO ; 15 MG, 1 IN 1 D, PO
     Route: 048
     Dates: start: 20110501
  6. REVLIMID [Suspect]
     Indication: MULTIPLE MYELOMA
     Dosage: 25 MG, 1 IN 1 D, PO ; 5-10MG, DAILY, PO ; 15 MG, 1 IN 1 D, PO
     Route: 048
     Dates: start: 20100401
  7. REVLIMID [Suspect]
     Indication: MULTIPLE MYELOMA
     Dosage: 25 MG, 1 IN 1 D, PO ; 5-10MG, DAILY, PO ; 15 MG, 1 IN 1 D, PO
     Route: 048
     Dates: start: 20090301
  8. ZANTAC [Concomitant]

REACTIONS (1)
  - THROMBOSIS [None]
